FAERS Safety Report 12927300 (Version 1)
Quarter: 2016Q4

REPORT INFORMATION
  Report Type: Spontaneous
  Country: US (occurrence: US)
  Receive Date: 20161109
  Receipt Date: 20161109
  Transmission Date: 20170207
  Serious: Yes (Hospitalization)
  Sender: FDA-Public Use
  Company Number: None

PATIENT
  Age: 49 Year
  Sex: Male

DRUGS (6)
  1. ACYCLOVIR. [Concomitant]
     Active Substance: ACYCLOVIR
  2. CIPROFLOXACIN. [Concomitant]
     Active Substance: CIPROFLOXACIN
  3. OXICONAZOLE [Concomitant]
     Active Substance: OXICONAZOLE
  4. SPRYCEL [Suspect]
     Active Substance: DASATINIB
     Indication: ACUTE LEUKAEMIA
     Dosage: 140MG QD OR
     Route: 048
     Dates: start: 20161014
  5. AMOXL CLAV [Concomitant]
  6. FLUCONAZOLE. [Concomitant]
     Active Substance: FLUCONAZOLE

REACTIONS (1)
  - Gastrointestinal disorder [None]

NARRATIVE: CASE EVENT DATE: 20161028
